FAERS Safety Report 22044078 (Version 1)
Quarter: 2023Q1

REPORT INFORMATION
  Report Type: Spontaneous
  Country: US (occurrence: None)
  Receive Date: 20230227
  Receipt Date: 20230227
  Transmission Date: 20230418
  Serious: Yes (unspecified)
  Sender: FDA-Public Use
  Company Number: None

PATIENT
  Age: 76 Year
  Sex: Female
  Weight: 72 kg

DRUGS (2)
  1. THERATEARS LUBRICANT [Suspect]
     Active Substance: CARBOXYMETHYLCELLULOSE SODIUM
     Indication: Dry eye
     Dates: start: 20230131, end: 20230131
  2. herbs for blood pressure control [Concomitant]

REACTIONS (10)
  - Conjunctivitis [None]
  - Instillation site irritation [None]
  - Instillation site erythema [None]
  - Lacrimation increased [None]
  - Eye irritation [None]
  - Erythema [None]
  - Swelling face [None]
  - Sinus operation [None]
  - Pseudomonas infection [None]
  - Product contamination microbial [None]

NARRATIVE: CASE EVENT DATE: 20230227
